FAERS Safety Report 4360062-7 (Version None)
Quarter: 2004Q2

REPORT INFORMATION
  Report Type: 
  Country: None (occurrence: None)
  Receive Date: 20040513
  Receipt Date: 20040507
  Transmission Date: 20050107
  Serious: Yes (Life-Threatening)
  Sender: FDA-Public Use
  Company Number: 2004UW09490

PATIENT
  Age: 43 Year
  Sex: Male

DRUGS (3)
  1. CRESTOR [Suspect]
     Dosage: 20 MG DAILY PO
     Route: 048
  2. LIPIDIL [Concomitant]
  3. LITHIUM CARBONATE [Concomitant]

REACTIONS (2)
  - DRUG TOXICITY [None]
  - THERAPEUTIC AGENT TOXICITY [None]
